FAERS Safety Report 24351966 (Version 1)
Quarter: 2024Q3

REPORT INFORMATION
  Report Type: Report from Study
  Country: AT (occurrence: AT)
  Receive Date: 20240923
  Receipt Date: 20240923
  Transmission Date: 20241017
  Serious: No
  Sender: ROCHE
  Company Number: AT-ROCHE-3283732

PATIENT
  Age: 50 Year
  Sex: Female
  Weight: 60.0 kg

DRUGS (14)
  1. HERCEPTIN [Suspect]
     Active Substance: TRASTUZUMAB
     Indication: HER2 positive breast cancer
     Route: 042
     Dates: start: 20190208, end: 20190208
  2. HERCEPTIN [Suspect]
     Active Substance: TRASTUZUMAB
     Route: 042
     Dates: start: 20190304, end: 20210317
  3. PERJETA [Suspect]
     Active Substance: PERTUZUMAB
     Indication: HER2 positive breast cancer
     Route: 042
     Dates: start: 20190208, end: 20190208
  4. PERJETA [Suspect]
     Active Substance: PERTUZUMAB
     Route: 042
     Dates: start: 20190304, end: 20210317
  5. KADCYLA [Suspect]
     Active Substance: ADO-TRASTUZUMAB EMTANSINE
     Indication: HER2 positive breast cancer
     Route: 042
     Dates: start: 20210414, end: 20220420
  6. GOSERELIN [Suspect]
     Active Substance: GOSERELIN
     Indication: HER2 positive breast cancer
     Route: 058
     Dates: start: 20190208
  7. FEMARA [Suspect]
     Active Substance: LETROZOLE
     Indication: HER2 positive breast cancer
     Route: 048
     Dates: start: 20190208, end: 20191112
  8. NAVELBINE [Suspect]
     Active Substance: VINORELBINE TARTRATE
     Indication: HER2 positive breast cancer
     Dosage: OTHER, MOST RECENT DOSE ON 18/SEP/2019
     Route: 048
     Dates: start: 20190418
  9. ARIMIDEX [Suspect]
     Active Substance: ANASTROZOLE
     Indication: HER2 positive breast cancer
     Route: 048
     Dates: start: 20191113, end: 20210317
  10. FAM-TRASTUZUMAB DERUXTECAN-NXKI [Suspect]
     Active Substance: FAM-TRASTUZUMAB DERUXTECAN-NXKI
     Indication: HER2 positive breast cancer
     Route: 042
     Dates: start: 20220525
  11. PASPERTIN [Concomitant]
     Dosage: ONGOING = CHECKED
     Dates: start: 20220525
  12. XGEVA [Concomitant]
     Active Substance: DENOSUMAB
     Dosage: ONGOING = CHECKED
     Dates: start: 20211110
  13. NOVALGIN (AUSTRIA) [Concomitant]
     Dosage: ONGOING = CHECKED
     Dates: start: 20220525
  14. GOSERELIN [Concomitant]
     Active Substance: GOSERELIN
     Dosage: ONGOING = CHECKED

REACTIONS (1)
  - Peripheral sensory neuropathy [Not Recovered/Not Resolved]

NARRATIVE: CASE EVENT DATE: 20220928
